FAERS Safety Report 7172458-9 (Version None)
Quarter: 2010Q4

REPORT INFORMATION
  Report Type: 
  Country: None (occurrence: None)
  Receive Date: 20101217
  Receipt Date: 20100816
  Transmission Date: 20110411
  Serious: No
  Sender: FDA-Public Use
  Company Number: US-AMGEN-KDL391002

PATIENT

DRUGS (1)
  1. ENBREL [Suspect]
     Indication: PSORIASIS
     Dosage: 50 MG, 2 TIMES/WK
     Route: 058
     Dates: start: 20090101, end: 20100201

REACTIONS (4)
  - BURN INFECTION [None]
  - DERMAL CYST [None]
  - DRUG INEFFECTIVE [None]
  - THERMAL BURN [None]
